FAERS Safety Report 11279257 (Version 1)
Quarter: 2015Q3

REPORT INFORMATION
  Report Type: Spontaneous
  Country: US (occurrence: None)
  Receive Date: 20150716
  Receipt Date: 20150716
  Transmission Date: 20151125
  Serious: No
  Sender: FDA-Public Use
  Company Number: None

PATIENT
  Age: 50 Year
  Sex: Female
  Weight: 59.5 kg

DRUGS (1)
  1. ARIPIPRAZOLE. [Suspect]
     Active Substance: ARIPIPRAZOLE
     Route: 048
     Dates: start: 20150710, end: 20150713

REACTIONS (5)
  - Product substitution issue [None]
  - Crying [None]
  - Drug ineffective [None]
  - Bipolar disorder [None]
  - Condition aggravated [None]

NARRATIVE: CASE EVENT DATE: 20150710
